FAERS Safety Report 24762093 (Version 1)
Quarter: 2024Q4

REPORT INFORMATION
  Report Type: Spontaneous
  Country: NL (occurrence: NL)
  Receive Date: 20241221
  Receipt Date: 20241221
  Transmission Date: 20250115
  Serious: Yes (Other)
  Sender: AUROBINDO
  Company Number: NL-MYLANLABS-2024M1107489

PATIENT
  Age: 85 Year
  Sex: Female

DRUGS (2)
  1. BACLOFEN [Suspect]
     Active Substance: BACLOFEN
     Indication: Muscle spasms
     Dosage: 75 MICROGRAM, ONCE A DAY (25 MICROGRAM, TID (FOR 20 YEARS))
     Route: 065
  2. BACLOFEN [Suspect]
     Active Substance: BACLOFEN
     Indication: Muscular dystrophy

REACTIONS (7)
  - Coma [Unknown]
  - Apnoea [Unknown]
  - Renal impairment [Unknown]
  - Drug level increased [Unknown]
  - Malaise [Unknown]
  - Hypotension [Unknown]
  - Bradycardia [Unknown]
